FAERS Safety Report 5061890-5 (Version None)
Quarter: 2006Q3

REPORT INFORMATION
  Report Type: 
  Country: None (occurrence: None)
  Receive Date: 20060726
  Receipt Date: 20060718
  Transmission Date: 20061208
  Serious: Yes (Other)
  Sender: FDA-Public Use
  Company Number: PHFR2006GB02260

PATIENT
  Age: 50 Year
  Sex: Male

DRUGS (4)
  1. CLOZARIL [Suspect]
     Indication: SCHIZOAFFECTIVE DISORDER
     Dosage: 500 MG, QD
     Route: 048
     Dates: start: 20020101
  2. ABILIFY [Suspect]
     Indication: SCHIZOAFFECTIVE DISORDER
     Dosage: 10 MG, QD
     Route: 048
     Dates: start: 20041101, end: 20050101
  3. REBOXETINE [Concomitant]
     Indication: SCHIZOAFFECTIVE DISORDER
     Dosage: 6 MG, QD
     Route: 048
     Dates: start: 20040101
  4. SERTRALINE [Concomitant]
     Dosage: 200 MG, QD
     Route: 048
     Dates: start: 20020101

REACTIONS (3)
  - DIZZINESS [None]
  - DRUG INTERACTION [None]
  - WOLFF-PARKINSON-WHITE SYNDROME [None]
